FAERS Safety Report 5689344-3 (Version None)
Quarter: 2008Q1

REPORT INFORMATION
  Report Type: 
  Country: None (occurrence: None)
  Receive Date: 20080331
  Receipt Date: 20080322
  Transmission Date: 20080703
  Serious: Yes (Other)
  Sender: FDA-Public Use
  Company Number: US-PFIZER INC-2008026278

PATIENT
  Sex: Female

DRUGS (12)
  1. CHANTIX [Suspect]
     Indication: SMOKING CESSATION THERAPY
  2. PLAVIX [Concomitant]
  3. ACETYLSALICYLIC ACID SRT [Concomitant]
  4. ISOSORBIDE DINITRATE [Concomitant]
  5. RISPERDAL [Concomitant]
  6. ATENOLOL [Concomitant]
  7. LIPITOR [Concomitant]
  8. NARDIL [Concomitant]
  9. KLONOPIN [Concomitant]
  10. FUROSEMIDE [Concomitant]
  11. ALL OTHER THERAPEUTIC PRODUCTS [Concomitant]
  12. ZETIA [Concomitant]

REACTIONS (3)
  - BLOOD CHOLESTEROL INCREASED [None]
  - CORONARY ARTERIAL STENT INSERTION [None]
  - DRUG INEFFECTIVE [None]
